FAERS Safety Report 19211434 (Version 1)
Quarter: 2021Q2

REPORT INFORMATION
  Report Type: Report from Study
  Country: US (occurrence: US)
  Receive Date: 20210504
  Receipt Date: 20210504
  Transmission Date: 20210717
  Serious: Yes (Death, Hospitalization, Other)
  Sender: FDA-Public Use
  Company Number: US-BRISTOL-MYERS SQUIBB COMPANY-BMS-2021-042572

PATIENT
  Age: 74 Year
  Sex: Male
  Weight: 71.9 kg

DRUGS (2)
  1. VOROLANIB [Suspect]
     Active Substance: VOROLANIB
     Indication: NEOPLASM
     Dosage: 200 MILLIGRAM, QD
     Route: 048
     Dates: start: 20200922, end: 20210111
  2. NIVOLUMAB [Suspect]
     Active Substance: NIVOLUMAB
     Indication: NEOPLASM
     Dosage: 240 MG, PER STUDY
     Route: 042
     Dates: start: 20200922, end: 20201215

REACTIONS (5)
  - Infection [Unknown]
  - Death [Fatal]
  - Renal failure [Unknown]
  - Acute myocardial infarction [Unknown]
  - Mental status changes [Recovered/Resolved]

NARRATIVE: CASE EVENT DATE: 20210309
